FAERS Safety Report 5426976-1 (Version None)
Quarter: 2007Q3

REPORT INFORMATION
  Report Type: 
  Country: None (occurrence: None)
  Receive Date: 20070827
  Receipt Date: 20070821
  Transmission Date: 20080115
  Serious: Yes (Hospitalization)
  Sender: FDA-Public Use
  Company Number: DE-MERCK-0708DEU00193

PATIENT
  Age: 6 Year
  Sex: Male

DRUGS (3)
  1. SINGULAIR [Suspect]
     Indication: HYPERSENSITIVITY
     Route: 048
     Dates: start: 20070627, end: 20070714
  2. TERBUTALINE SULFATE [Concomitant]
     Indication: COUGH
     Route: 048
     Dates: start: 20070627, end: 20070714
  3. MOMETASONE FUROATE [Concomitant]
     Indication: NASAL CONGESTION
     Dates: start: 20070627, end: 20070714

REACTIONS (3)
  - MOOD SWINGS [None]
  - PERSONALITY CHANGE [None]
  - TIC [None]
